FAERS Safety Report 20586709 (Version 2)
Quarter: 2022Q2

REPORT INFORMATION
  Report Type: Report from Study
  Country: CA (occurrence: CA)
  Receive Date: 20220313
  Receipt Date: 20220418
  Transmission Date: 20220721
  Serious: Yes (Hospitalization, Other)
  Sender: FDA-Public Use
  Company Number: CA-ABBVIE-22K-028-4312222-00

PATIENT
  Age: 81 Year
  Sex: Female

DRUGS (1)
  1. RINVOQ [Suspect]
     Active Substance: UPADACITINIB
     Indication: Rheumatoid arthritis
     Route: 048
     Dates: start: 20201013, end: 202202

REACTIONS (6)
  - Ureteral neoplasm [Unknown]
  - Surgery [Unknown]
  - Vomiting [Unknown]
  - Feeling abnormal [Unknown]
  - Ureteral wall thickening [Unknown]
  - Ureteral disorder [Unknown]

NARRATIVE: CASE EVENT DATE: 20220309
